FAERS Safety Report 18469078 (Version 2)
Quarter: 2020Q4

REPORT INFORMATION
  Report Type: Spontaneous
  Country: CA (occurrence: CA)
  Receive Date: 20201105
  Receipt Date: 20201112
  Transmission Date: 20210114
  Serious: Yes (Other)
  Sender: FDA-Public Use
  Company Number: CA-JNJFOC-20201051977

PATIENT
  Age: 25 Year
  Sex: Female

DRUGS (2)
  1. BUDESONIDE. [Concomitant]
     Active Substance: BUDESONIDE
     Route: 065
  2. REMICADE [Suspect]
     Active Substance: INFLIXIMAB
     Indication: CROHN^S DISEASE
     Route: 042

REACTIONS (7)
  - Therapeutic response shortened [Unknown]
  - Intentional product use issue [Unknown]
  - Off label use [Unknown]
  - Pyrexia [Unknown]
  - Bronchitis [Unknown]
  - Pharyngitis streptococcal [Unknown]
  - Condition aggravated [Unknown]
